FAERS Safety Report 23050088 (Version 1)
Quarter: 2023Q4

REPORT INFORMATION
  Report Type: Spontaneous
  Country: US (occurrence: None)
  Receive Date: 20231009
  Receipt Date: 20231009
  Transmission Date: 20240109
  Serious: No
  Sender: FDA-Public Use
  Company Number: None

PATIENT
  Sex: Male

DRUGS (3)
  1. ERLEADA [Suspect]
     Active Substance: APALUTAMIDE
     Indication: Prostate cancer
     Dosage: FREQUENCY : DAILY;?
     Route: 048
     Dates: start: 202204
  2. ERLEADA [Suspect]
     Active Substance: APALUTAMIDE
     Indication: Bone cancer
  3. ERLEADA [Suspect]
     Active Substance: APALUTAMIDE
     Indication: Metastasis

REACTIONS (2)
  - Loss of therapeutic response [None]
  - Drug ineffective [None]
